FAERS Safety Report 5845241-1 (Version None)
Quarter: 2008Q3

REPORT INFORMATION
  Report Type: 
  Country: None (occurrence: None)
  Receive Date: 20080814
  Receipt Date: 20080807
  Transmission Date: 20090109
  Serious: Yes (Life-Threatening, Hospitalization)
  Sender: FDA-Public Use
  Company Number: B0532281A

PATIENT
  Age: 71 Year
  Sex: Male

DRUGS (11)
  1. AVANDAMET [Suspect]
     Dosage: 4MG TWICE PER DAY
     Route: 048
     Dates: start: 20080401, end: 20080620
  2. GLUCOVANCE [Suspect]
     Dosage: 2TAB TWICE PER DAY
     Route: 048
     Dates: start: 20050501, end: 20080620
  3. SERETIDE [Concomitant]
     Route: 055
  4. VENTOLIN [Concomitant]
     Route: 055
  5. ALLOPURINOL [Concomitant]
     Route: 065
  6. VERAPAMIL [Concomitant]
     Route: 065
  7. ALDALIX [Concomitant]
     Route: 065
  8. BROMAZEPAM [Concomitant]
     Route: 065
  9. OXEOL [Concomitant]
     Route: 048
  10. CRESTOR [Concomitant]
     Route: 048
  11. PLAVIX [Concomitant]
     Route: 048

REACTIONS (8)
  - CARDIOGENIC SHOCK [None]
  - DYSPNOEA [None]
  - HEPATOCELLULAR INJURY [None]
  - HYPERKALAEMIA [None]
  - LACTIC ACIDOSIS [None]
  - MALAISE [None]
  - OEDEMA PERIPHERAL [None]
  - RENAL FAILURE [None]
